FAERS Safety Report 11238929 (Version 1)
Quarter: 2015Q3

REPORT INFORMATION
  Report Type: Spontaneous
  Country: US (occurrence: US)
  Receive Date: 20150706
  Receipt Date: 20150706
  Transmission Date: 20151125
  Serious: Yes (Other)
  Sender: FDA-Public Use
  Company Number: US-ASTRAZENECA-2015SE64573

PATIENT
  Sex: Male

DRUGS (3)
  1. MANY OTHERS DRUGS [Concomitant]
  2. INSULIN [Concomitant]
     Active Substance: INSULIN NOS
  3. BRILINTA [Suspect]
     Active Substance: TICAGRELOR
     Dosage: TWO TIMES A DAY
     Route: 048

REACTIONS (3)
  - Intentional product misuse [Unknown]
  - Vascular graft occlusion [Unknown]
  - Myocardial infarction [Unknown]
